FAERS Safety Report 10089807 (Version 1)
Quarter: 2014Q2

REPORT INFORMATION
  Report Type: Spontaneous
  Country: GB (occurrence: None)
  Receive Date: 20140417
  Receipt Date: 20140417
  Transmission Date: 20141212
  Serious: Yes (Congenital Anomaly, Other)
  Sender: FDA-Public Use
  Company Number: AUR-APL-2014-04493

PATIENT
  Age: 22 Week
  Sex: 0

DRUGS (6)
  1. ALENDRONIC ACID [Suspect]
     Indication: PROPHYLAXIS
     Dosage: 1 IN 1 WK
     Route: 064
  2. ALENDRONIC ACID [Suspect]
     Indication: STEROID THERAPY
     Dosage: 1 IN 1 WK
     Route: 064
  3. AZATHIOPRINE (AZATHIOPRINE) [Concomitant]
  4. CALCICHEW (CALCIUM CARBONATE) [Concomitant]
  5. MEZAVANT XL (MESALAZINE) [Concomitant]
  6. OMEPRAZOLE (OMEPRAZOLE) [Concomitant]

REACTIONS (3)
  - Hypoplastic left heart syndrome [None]
  - Maternal drugs affecting foetus [None]
  - Abortion induced [None]
